FAERS Safety Report 9528747 (Version 1)
Quarter: 2013Q1

REPORT INFORMATION
  Report Type: Spontaneous
  Country: US (occurrence: None)
  Receive Date: 20130314
  Receipt Date: 20130314
  Transmission Date: 20140127
  Serious: No
  Sender: FDA-Public Use
  Company Number: 1212USA000157

PATIENT
  Sex: Female

DRUGS (2)
  1. VICTRELIS ( BOCEPREVIR) CAPSULE, 200 MG [Suspect]
     Route: 048
     Dates: start: 20121116
  2. RIBAVIRIN (RIBAVIRIN) CAPSULE [Suspect]
     Route: 048
     Dates: start: 20120914

REACTIONS (2)
  - Inappropriate schedule of drug administration [None]
  - No adverse event [None]
